FAERS Safety Report 4719103-7 (Version None)
Quarter: 2005Q3

REPORT INFORMATION
  Report Type: 
  Country: None (occurrence: None)
  Receive Date: 20050720
  Receipt Date: 20050627
  Transmission Date: 20060218
  Serious: Yes (Hospitalization)
  Sender: FDA-Public Use
  Company Number: S05-SWE-01497-01

PATIENT
  Age: 77 Year
  Sex: Female

DRUGS (11)
  1. EBIXA (MEMANTINE) [Suspect]
     Indication: DEMENTIA ALZHEIMER'S TYPE
     Dosage: 10 MG BID PO
     Route: 048
     Dates: start: 20040622, end: 20050113
  2. REMINYL [Suspect]
     Dosage: 8 MG BID PO
     Route: 048
     Dates: start: 20030101, end: 20050225
  3. REMINYL [Suspect]
     Dosage: 8 MG QD PO
     Route: 048
     Dates: start: 20030601, end: 20030101
  4. OPTINATE (RISEDRONATE SODIUM) [Concomitant]
  5. LANSOPRAZOLE [Concomitant]
  6. KALCIPOS-D3 [Concomitant]
  7. LEVAXIN (LEVOTHYROXINE SODIUM) [Concomitant]
  8. ZOPIKLON [Concomitant]
  9. CITALOPRAM [Concomitant]
  10. DIGOXIN [Concomitant]
  11. ASPIRIN [Concomitant]

REACTIONS (10)
  - ALANINE AMINOTRANSFERASE INCREASED [None]
  - ASPARTATE AMINOTRANSFERASE INCREASED [None]
  - ATRIAL FIBRILLATION [None]
  - BRAIN SCAN ABNORMAL [None]
  - CARDIAC FAILURE [None]
  - CEREBROVASCULAR ACCIDENT [None]
  - COGNITIVE DISORDER [None]
  - DEMENTIA ALZHEIMER'S TYPE [None]
  - DYSPHASIA [None]
  - HEMIPARESIS [None]
